FAERS Safety Report 7626672-6 (Version None)
Quarter: 2011Q3

REPORT INFORMATION
  Report Type: 
  Country: None (occurrence: None)
  Receive Date: 20110721
  Receipt Date: 20110614
  Transmission Date: 20111222
  Serious: No
  Sender: FDA-Public Use
  Company Number: US-NOVEN-11US002623

PATIENT
  Sex: Female

DRUGS (3)
  1. FENTANYL [Suspect]
     Dosage: 100 UG X1 AND 75 UG X1 PATCH EVERY 72 HR
     Route: 062
     Dates: start: 20110613, end: 20110614
  2. FENTANYL [Concomitant]
     Dosage: UNK
     Route: 062
     Dates: start: 20090101, end: 20110613
  3. FENTANYL [Suspect]
     Indication: PAIN
     Dosage: 100 UG X1 AND 75 UG X1 PATCH EVERY 72 HR
     Route: 062
     Dates: start: 20110613, end: 20110614

REACTIONS (1)
  - URTICARIA [None]
